FAERS Safety Report 7406617-4 (Version None)
Quarter: 2011Q2

REPORT INFORMATION
  Report Type: 
  Country: None (occurrence: None)
  Receive Date: 20110408
  Receipt Date: 20110408
  Transmission Date: 20111010
  Serious: Yes (Life-Threatening, Hospitalization)
  Sender: FDA-Public Use
  Company Number: None

PATIENT
  Age: 68 Year
  Sex: Male
  Weight: 77 kg

DRUGS (21)
  1. FENTANYL [Concomitant]
  2. HUMULIN R [Concomitant]
  3. METOPROLOL [Concomitant]
  4. LANTUS [Concomitant]
  5. REGLAN [Concomitant]
  6. TRAMADOL [Concomitant]
  7. CETUXIMAB [Suspect]
     Indication: HEAD AND NECK CANCER
     Dosage: 400MG/M2, LOADING, IV 250MG/M2, IV
     Route: 042
     Dates: start: 20100927
  8. CETUXIMAB [Suspect]
     Indication: HEAD AND NECK CANCER
     Dosage: 400MG/M2, LOADING, IV 250MG/M2, IV
     Route: 042
     Dates: start: 20101024, end: 20101115
  9. CELLCEPT [Concomitant]
  10. MINOCYCLINE [Concomitant]
  11. BACITRACIN [Concomitant]
  12. CRESTOR [Concomitant]
  13. XENADERM OINTMENT [Concomitant]
  14. CHLORHEXIDINE GLUCONATE [Concomitant]
  15. OXYCODONE [Concomitant]
  16. NOVOLOG [Concomitant]
  17. PROGRAF [Concomitant]
  18. AMLODIPINE [Concomitant]
  19. NASACORT [Concomitant]
  20. BIOTENE MOUTH SPRAY [Concomitant]
  21. ZOLPIDEM [Concomitant]

REACTIONS (1)
  - DYSPNOEA [None]
